FAERS Safety Report 18058139 (Version 10)
Quarter: 2022Q2

REPORT INFORMATION
  Report Type: Report from Study
  Country: None (occurrence: US)
  Receive Date: 20200723
  Receipt Date: 20220413
  Transmission Date: 20220721
  Serious: Yes (Other)
  Sender: FDA-Public Use
  Company Number: US-AKCEA THERAPEUTICS-2020IS001291

PATIENT
  Age: 83 Year
  Sex: Male
  Weight: 68.182 kg

DRUGS (3)
  1. TEGSEDI [Suspect]
     Active Substance: INOTERSEN SODIUM
     Indication: Hereditary neuropathic amyloidosis
     Route: 058
     Dates: start: 20181227, end: 202009
  2. DEVICE [Suspect]
     Active Substance: DEVICE
  3. TEGSEDI [Suspect]
     Active Substance: INOTERSEN SODIUM
     Route: 058
     Dates: end: 202107

REACTIONS (18)
  - Blood creatinine increased [Not Recovered/Not Resolved]
  - Renal impairment [Not Recovered/Not Resolved]
  - Haemoglobin decreased [Unknown]
  - Red cell distribution width increased [Unknown]
  - Lymphocyte count decreased [Unknown]
  - Urinary casts [Unknown]
  - Blood sodium decreased [Unknown]
  - Blood chloride decreased [Unknown]
  - Blood urea increased [Unknown]
  - Blood glucose increased [Unknown]
  - Blood albumin decreased [Unknown]
  - Brain natriuretic peptide increased [Unknown]
  - Urine abnormality [Unknown]
  - Urine protein/creatinine ratio increased [Not Recovered/Not Resolved]
  - Glomerular filtration rate decreased [Not Recovered/Not Resolved]
  - Protein urine present [Unknown]
  - Nitrite urine present [Unknown]
  - Bacterial test positive [Unknown]

NARRATIVE: CASE EVENT DATE: 20200622
